FAERS Safety Report 10263048 (Version 1)
Quarter: 2014Q2

REPORT INFORMATION
  Report Type: Spontaneous
  Country: US (occurrence: US)
  Receive Date: 20140626
  Receipt Date: 20140626
  Transmission Date: 20141212
  Serious: Yes (Other)
  Sender: FDA-Public Use
  Company Number: US-MYLANLABS-2013S1028367

PATIENT
  Age: 60 Year
  Sex: Male

DRUGS (5)
  1. CLOZAPINE TABLETS [Suspect]
     Indication: SCHIZOPHRENIA, PARANOID TYPE
     Route: 048
     Dates: start: 201303, end: 20131210
  2. ASA [Concomitant]
     Route: 048
  3. CLOPIDOGREL [Concomitant]
     Route: 048
     Dates: start: 20131002
  4. SIMVASTATIN [Concomitant]
     Route: 048
     Dates: start: 201304
  5. LOSARTAN [Concomitant]
     Route: 048

REACTIONS (1)
  - White blood cell count decreased [Not Recovered/Not Resolved]
